FAERS Safety Report 12896965 (Version 2)
Quarter: 2017Q1

REPORT INFORMATION
  Report Type: Spontaneous
  Country: US (occurrence: US)
  Receive Date: 20161031
  Receipt Date: 20170123
  Transmission Date: 20170428
  Serious: No
  Sender: FDA-Public Use
  Company Number: US-PFIZER INC-2016501611

PATIENT
  Age: 81 Year
  Sex: Female
  Weight: 79 kg

DRUGS (9)
  1. METOPROLOL. [Concomitant]
     Active Substance: METOPROLOL
     Indication: BLOOD PRESSURE ABNORMAL
  2. KERYDIN [Suspect]
     Active Substance: TAVABOROLE
     Indication: FUNGAL INFECTION
     Dosage: 1 DF, DAILY (1 DOSE A DAY AT NIGHT ON TOENAILS)
     Dates: start: 201608, end: 201609
  3. SIMVASTATIN. [Concomitant]
     Active Substance: SIMVASTATIN
     Indication: BLOOD CHOLESTEROL ABNORMAL
     Dosage: 10 MG, 1X/DAY
  4. PRESERVISION [Concomitant]
     Active Substance: MINERALS\VITAMINS
     Indication: EYE DISORDER
     Dosage: UNK, 2X/DAY (1 IN THE MORNING AND 1 AT NIGHT)
  5. CALTRATE+VITAMIN D3 [Concomitant]
     Indication: BONE DISORDER
     Dosage: 600 MG, 2X/DAY (1 IN THE MORNING AND 1 AT NIGHT)
  6. METOPROLOL. [Concomitant]
     Active Substance: METOPROLOL
     Indication: HEART RATE INCREASED
     Dosage: 25 MG, 2X/DAY (1 AT NOON AND 1 AT NIGHT)
  7. KERYDIN [Suspect]
     Active Substance: TAVABOROLE
     Dosage: 10 MG, 1X/DAY
  8. BENICAR HCT [Concomitant]
     Active Substance: HYDROCHLOROTHIAZIDE\OLMESARTAN MEDOXOMIL
     Indication: BLOOD PRESSURE ABNORMAL
     Dosage: 1 DF, DAILY (OLMESARTAN MEDOXOMIL, 40MG/HYDROCHLOROTHIAZIDE,12.5MG)
  9. SYMBICORT [Concomitant]
     Active Substance: BUDESONIDE\FORMOTEROL FUMARATE DIHYDRATE
     Indication: CHRONIC OBSTRUCTIVE PULMONARY DISEASE
     Dosage: 2 DF, DAILY (INHALER 2 PUFFS IN THE MORNING)

REACTIONS (1)
  - Dyspnoea [Recovered/Resolved]

NARRATIVE: CASE EVENT DATE: 201609
